FAERS Safety Report 10569788 (Version 1)
Quarter: 2014Q4

REPORT INFORMATION
  Report Type: Spontaneous
  Country: GB (occurrence: GB)
  Receive Date: 20141107
  Receipt Date: 20141107
  Transmission Date: 20150529
  Serious: Yes (Disabling)
  Sender: FDA-Public Use
  Company Number: GB-AUROBINDO-AUR-APL-2014-11612

PATIENT
  Age: 67 Year
  Sex: Female

DRUGS (1)
  1. SIMVASTATIN FILM-COATED TABLETS 40MG (SIMVASTATIN) TABLET, 40MG? [Suspect]
     Active Substance: SIMVASTATIN
     Indication: PRODUCT USED FOR UNKNOWN INDICATION
     Dosage: UNK
     Route: 048
     Dates: start: 201002

REACTIONS (9)
  - Psychiatric symptom [Recovered/Resolved]
  - Myalgia [Recovered/Resolved]
  - Feeling abnormal [Recovered/Resolved]
  - Quality of life decreased [Recovered/Resolved]
  - Social avoidant behaviour [Recovered/Resolved]
  - Memory impairment [Recovered/Resolved]
  - Self esteem decreased [Recovered/Resolved]
  - Balance disorder [Recovered/Resolved]
  - Activities of daily living impaired [Recovered/Resolved]
